FAERS Safety Report 10737269 (Version 1)
Quarter: 2015Q1

REPORT INFORMATION
  Report Type: Spontaneous
  Country: US (occurrence: None)
  Receive Date: 20150122
  Receipt Date: 20150122
  Transmission Date: 20150721
  Serious: Yes (Life-Threatening, Hospitalization)
  Sender: FDA-Public Use
  Company Number: NES-LS-15-001

PATIENT
  Age: 58 Year
  Sex: Female

DRUGS (3)
  1. METOPROLOL [Concomitant]
     Active Substance: METOPROLOL
  2. POTASSIUM CHLORIDE. [Suspect]
     Active Substance: POTASSIUM CHLORIDE
     Dosage: 20 MEQ/L AT 1.6 MEQ/H
  3. LISINOPRIL. [Concomitant]
     Active Substance: LISINOPRIL

REACTIONS (5)
  - Toxicity to various agents [None]
  - Electrocardiogram abnormal [None]
  - Hyperkalaemia [None]
  - Electrolyte imbalance [None]
  - Electrocardiogram QRS complex prolonged [None]
